FAERS Safety Report 7835108-1 (Version None)
Quarter: 2011Q4

REPORT INFORMATION
  Report Type: 
  Country: None (occurrence: None)
  Receive Date: 20111024
  Receipt Date: 20111011
  Transmission Date: 20120403
  Serious: Yes (Life-Threatening, Hospitalization, Other)
  Sender: FDA-Public Use
  Company Number: US-ELI_LILLY_AND_COMPANY-US201105006684

PATIENT
  Sex: Male

DRUGS (9)
  1. ZYPREXA [Suspect]
     Dosage: 30 MG, UNK
     Dates: end: 20110901
  2. ATIVAN [Concomitant]
     Dosage: 8 MG, UNK
  3. ATIVAN [Concomitant]
     Dosage: 2 MG, TID
  4. CELEXA [Concomitant]
     Indication: OBSESSIVE-COMPULSIVE DISORDER
     Dosage: UNK
  5. ATIVAN [Concomitant]
     Dosage: 4 MG, QD
  6. ZYPREXA [Suspect]
     Dosage: 50 MG, QD
     Dates: start: 20110501
  7. CLOZARIL [Concomitant]
     Dosage: 25 MG, UNK
  8. ZYPREXA [Suspect]
     Indication: SCHIZOPHRENIA
     Dosage: 40 MG, QD
  9. ZYPREXA [Suspect]
     Dosage: 40 MG, QD
     Dates: start: 20110601

REACTIONS (15)
  - COUGH [None]
  - OVERDOSE [None]
  - SEBORRHOEA [None]
  - WEIGHT INCREASED [None]
  - DYSPHAGIA [None]
  - LIVER DISORDER [None]
  - SPEECH DISORDER [None]
  - INCORRECT ROUTE OF DRUG ADMINISTRATION [None]
  - SECRETION DISCHARGE [None]
  - WHITE BLOOD CELL COUNT DECREASED [None]
  - ENDOTRACHEAL INTUBATION [None]
  - WRONG TECHNIQUE IN DRUG USAGE PROCESS [None]
  - MUSCULAR WEAKNESS [None]
  - PNEUMONIA ASPIRATION [None]
  - FEAR [None]
